FAERS Safety Report 12970086 (Version 3)
Quarter: 2017Q1

REPORT INFORMATION
  Report Type: Report from Study
  Country: None (occurrence: US)
  Receive Date: 20161123
  Receipt Date: 20170216
  Transmission Date: 20170428
  Serious: Yes (Hospitalization)
  Sender: FDA-Public Use
  Company Number: US-ABBVIE-16K-163-1784897-00

PATIENT
  Age: 64 Year
  Sex: Female
  Weight: 68.1 kg

DRUGS (4)
  1. HUMIRA [Suspect]
     Active Substance: ADALIMUMAB
     Route: 058
     Dates: start: 201610
  2. PREDNISONE. [Suspect]
     Active Substance: PREDNISONE
     Indication: INTESTINAL OBSTRUCTION
     Route: 065
  3. COLACE [Concomitant]
     Active Substance: DOCUSATE SODIUM
     Indication: PRODUCT USED FOR UNKNOWN INDICATION
  4. HUMIRA [Suspect]
     Active Substance: ADALIMUMAB
     Indication: CROHN^S DISEASE
     Route: 058
     Dates: start: 20160505, end: 201610

REACTIONS (9)
  - Abdominal pain [Recovered/Resolved]
  - Abdominal pain [Recovered/Resolved]
  - Influenza [Unknown]
  - Intestinal obstruction [Recovered/Resolved]
  - Muscle atrophy [Recovering/Resolving]
  - Constipation [Unknown]
  - Electrolyte imbalance [Unknown]
  - Intestinal obstruction [Recovered/Resolved]
  - Nervousness [Unknown]

NARRATIVE: CASE EVENT DATE: 201609
